FAERS Safety Report 6805306-4 (Version None)
Quarter: 2010Q2

REPORT INFORMATION
  Report Type: 
  Country: None (occurrence: None)
  Receive Date: 20100628
  Receipt Date: 20071106
  Transmission Date: 20101027
  Serious: No
  Sender: FDA-Public Use
  Company Number: US-PFIZER INC-2007090279

PATIENT
  Sex: Female
  Weight: 67.3 kg

DRUGS (7)
  1. GEODON [Suspect]
     Indication: BIPOLAR DISORDER
     Dates: start: 20070801
  2. EFFEXOR [Concomitant]
  3. LAMICTAL [Concomitant]
     Dates: end: 20071025
  4. TRAZODONE HYDROCHLORIDE [Concomitant]
  5. DRUG, UNSPECIFIED [Concomitant]
  6. MULTI-VITAMINS [Concomitant]
  7. GLUCOSAMINE [Concomitant]

REACTIONS (1)
  - RASH GENERALISED [None]
